FAERS Safety Report 18301453 (Version 1)
Quarter: 2020Q3

REPORT INFORMATION
  Report Type: Spontaneous
  Country: US (occurrence: US)
  Receive Date: 20200923
  Receipt Date: 20200923
  Transmission Date: 20201103
  Serious: Yes (Life-Threatening)
  Sender: FDA-Public Use
  Company Number: None

PATIENT
  Age: 81 Year
  Sex: Male

DRUGS (2)
  1. FENTANYL TRANSDERMAL SYSTEM [Suspect]
     Active Substance: FENTANYL
     Indication: PAIN
     Route: 061
     Dates: start: 20200621, end: 20200623
  2. HYDROMORPHONE (HYDROMORPHONE HCL 2MG TAB) [Suspect]
     Active Substance: HYDROMORPHONE HYDROCHLORIDE
     Indication: PAIN
     Route: 048
     Dates: start: 20200623, end: 20200623

REACTIONS (4)
  - Sedation [None]
  - Respiratory depression [None]
  - Pulseless electrical activity [None]
  - Hypotension [None]

NARRATIVE: CASE EVENT DATE: 20200623
